FAERS Safety Report 6365595-X (Version None)
Quarter: 2009Q3

REPORT INFORMATION
  Report Type: 
  Country: None (occurrence: None)
  Receive Date: 20090919
  Receipt Date: 20090820
  Transmission Date: 20100115
  Serious: No
  Sender: FDA-Public Use
  Company Number: US-ABBOTT-09P-163-0592407-00

PATIENT
  Weight: 64.468 kg

DRUGS (2)
  1. HUMIRA [Suspect]
     Indication: CROHN'S DISEASE
     Dosage: DAY 1
     Dates: start: 20090802, end: 20090802
  2. HUMIRA [Suspect]
     Dosage: SECOND DOSE
     Dates: start: 20090816

REACTIONS (1)
  - INJECTION SITE IRRITATION [None]
